FAERS Safety Report 5270534-9 (Version None)
Quarter: 2007Q1

REPORT INFORMATION
  Report Type: 
  Country: None (occurrence: None)
  Receive Date: 20070315
  Receipt Date: 20070305
  Transmission Date: 20070707
  Serious: Yes (Other)
  Sender: FDA-Public Use
  Company Number: TPA2006A01802

PATIENT
  Sex: Male
  Weight: 78.4723 kg

DRUGS (6)
  1. ROZEREM [Suspect]
     Indication: INSOMNIA
     Dosage: 8 MG PER ORAL
     Route: 048
     Dates: start: 20050922, end: 20061001
  2. CYMBALTA [Concomitant]
  3. BUSPAR [Concomitant]
  4. TRAMADOL HCL [Concomitant]
  5. ADVIL [Concomitant]
  6. KLONOPIN [Concomitant]

REACTIONS (1)
  - SLEEP PARALYSIS [None]
